FAERS Safety Report 17085014 (Version 1)
Quarter: 2019Q4

REPORT INFORMATION
  Report Type: Spontaneous
  Country: GB (occurrence: GB)
  Receive Date: 20191127
  Receipt Date: 20191127
  Transmission Date: 20200122
  Serious: Yes (Other)
  Sender: FDA-Public Use
  Company Number: GB-JIANGSU HENGRUI MEDICINE CO., LTD.-2077282

PATIENT
  Age: 50 Year
  Sex: Male

DRUGS (5)
  1. ENTECAVIR. [Suspect]
     Active Substance: ENTECAVIR
  2. FLUCONAZOLE. [Suspect]
     Active Substance: FLUCONAZOLE
  3. AMOXICILLIN/CLAVULANIC ACID [Suspect]
     Active Substance: AMOXICILLIN\CLAVULANIC ACID
  4. VALACICLOVIR [Suspect]
     Active Substance: VALACYCLOVIR HYDROCHLORIDE
  5. CYCLOPHOSPHAMIDE FOR INJECTION USP, 500 MG, 1 G AND 2 G PER SINGLE-DOS [Suspect]
     Active Substance: CYCLOPHOSPHAMIDE
     Indication: PRODUCT USED FOR UNKNOWN INDICATION

REACTIONS (1)
  - Periorbital cellulitis [Unknown]
